FAERS Safety Report 12956660 (Version 1)
Quarter: 2016Q4

REPORT INFORMATION
  Report Type: Spontaneous
  Country: US (occurrence: US)
  Receive Date: 20161118
  Receipt Date: 20161118
  Transmission Date: 20170207
  Serious: No
  Sender: FDA-Public Use
  Company Number: US-LUNDBECK-DKLU2021601

PATIENT
  Sex: Female

DRUGS (3)
  1. KEPPRA [Concomitant]
     Active Substance: LEVETIRACETAM
     Indication: PRODUCT USED FOR UNKNOWN INDICATION
     Route: 065
  2. ONFI [Suspect]
     Active Substance: CLOBAZAM
     Route: 065
  3. ONFI [Suspect]
     Active Substance: CLOBAZAM
     Indication: PARTIAL SEIZURES
     Route: 065

REACTIONS (9)
  - Middle insomnia [Unknown]
  - Fatigue [Unknown]
  - Psychomotor hyperactivity [Unknown]
  - Initial insomnia [Unknown]
  - Anger [Unknown]
  - Mood altered [Unknown]
  - Cognitive disorder [Unknown]
  - Irritability [Unknown]
  - Coordination abnormal [Unknown]
